FAERS Safety Report 9285647 (Version 1)
Quarter: 2013Q2

REPORT INFORMATION
  Report Type: Spontaneous
  Country: FR (occurrence: FR)
  Receive Date: 20130513
  Receipt Date: 20130513
  Transmission Date: 20140414
  Serious: Yes (Hospitalization)
  Sender: FDA-Public Use
  Company Number: FR-JNJFOC-20130500661

PATIENT
  Age: 53 Year
  Sex: Female

DRUGS (1)
  1. XEPLION [Suspect]
     Indication: PRODUCT USED FOR UNKNOWN INDICATION
     Route: 030

REACTIONS (6)
  - Musculoskeletal stiffness [Unknown]
  - Catatonia [Unknown]
  - Syncope [Unknown]
  - Rib fracture [Unknown]
  - Weight decreased [Unknown]
  - Overdose [Unknown]
